FAERS Safety Report 18649140 (Version 1)
Quarter: 2020Q4

REPORT INFORMATION
  Report Type: Report from Study
  Country: None (occurrence: JP)
  Receive Date: 20201222
  Receipt Date: 20201222
  Transmission Date: 20210114
  Serious: Yes (Other)
  Sender: FDA-Public Use
  Company Number: JP-ABBVIE-20K-087-3648622-00

PATIENT
  Age: 57 Year
  Sex: Male

DRUGS (1)
  1. MAVIRET [Suspect]
     Active Substance: GLECAPREVIR\PIBRENTASVIR
     Indication: HEPATITIS C
     Dosage: 3 MONTHS BEFORE
     Route: 048
     Dates: end: 202012

REACTIONS (6)
  - Malaise [Unknown]
  - Pyrexia [Unknown]
  - Haematuria [Not Recovered/Not Resolved]
  - Oxygen saturation decreased [Unknown]
  - Pruritus [Unknown]
  - Cerebral haemorrhage [Unknown]

NARRATIVE: CASE EVENT DATE: 2020
